FAERS Safety Report 16069725 (Version 3)
Quarter: 2020Q4

REPORT INFORMATION
  Report Type: Spontaneous
  Country: US (occurrence: US)
  Receive Date: 20190314
  Receipt Date: 20201123
  Transmission Date: 20210113
  Serious: No
  Sender: FDA-Public Use
  Company Number: US-009507513-1902USA004767

PATIENT
  Age: 57 Year
  Sex: Female

DRUGS (4)
  1. DULERA [Suspect]
     Active Substance: FORMOTEROL FUMARATE DIHYDRATE\MOMETASONE FUROATE
     Dosage: 2 INHALATION TWO TIMES DAILY
     Dates: start: 20201024
  2. DULERA [Suspect]
     Active Substance: FORMOTEROL FUMARATE DIHYDRATE\MOMETASONE FUROATE
     Indication: ASTHMA
     Dosage: 2 PUFFS IN AM AND 2 PUFFS IN PM
     Route: 055
  3. METOPROLOL. [Concomitant]
     Active Substance: METOPROLOL
  4. DULERA [Suspect]
     Active Substance: FORMOTEROL FUMARATE DIHYDRATE\MOMETASONE FUROATE
     Dosage: UNK
     Dates: start: 20201027

REACTIONS (5)
  - Product quality issue [Unknown]
  - Product quality issue [Unknown]
  - Breath sounds abnormal [Recovered/Resolved]
  - Poor quality device used [Unknown]
  - Poor quality device used [Unknown]

NARRATIVE: CASE EVENT DATE: 20190208
